FAERS Safety Report 24704458 (Version 1)
Quarter: 2024Q4

REPORT INFORMATION
  Report Type: Spontaneous
  Country: US (occurrence: US)
  Receive Date: 20241206
  Receipt Date: 20241206
  Transmission Date: 20250114
  Serious: No
  Sender: MERCK
  Company Number: US-009507513-2412USA001610

PATIENT
  Sex: Male

DRUGS (1)
  1. WINREVAIR [Suspect]
     Active Substance: SOTATERCEPT-CSRK
     Route: 065

REACTIONS (1)
  - Arthralgia [Unknown]
